FAERS Safety Report 16191533 (Version 2)
Quarter: 2019Q2

REPORT INFORMATION
  Report Type: Report from Study
  Country: JP (occurrence: JP)
  Receive Date: 20190412
  Receipt Date: 20190521
  Transmission Date: 20190711
  Serious: Yes (Life-Threatening, Hospitalization, Other)
  Sender: FDA-Public Use
  Company Number: JP-GLAXOSMITHKLINE-B0944089A

PATIENT
  Age: 57 Year
  Sex: Female
  Weight: 63 kg

DRUGS (49)
  1. LASIX [Concomitant]
     Active Substance: FUROSEMIDE
     Dosage: UNK
     Dates: start: 20121123, end: 20121209
  2. LUPRAC [Concomitant]
     Active Substance: TORSEMIDE
     Dosage: UNK
     Dates: start: 20060111, end: 20130714
  3. ALLOPURINOL. [Concomitant]
     Active Substance: ALLOPURINOL
     Dosage: UNK
     Route: 048
     Dates: end: 20130401
  4. OMEPRAZOLE. [Concomitant]
     Active Substance: OMEPRAZOLE
     Indication: PROPHYLAXIS
     Dosage: UNK
     Dates: end: 20121205
  5. PIMOBENDAN TABLET [Concomitant]
     Indication: RIGHT VENTRICULAR FAILURE
     Dosage: UNK
     Dates: start: 20121201, end: 20121220
  6. ASPARA POTASSIUM [Concomitant]
     Active Substance: POTASSIUM ASPARTATE
     Dosage: UNK
     Dates: start: 20130624, end: 20130714
  7. AMBRISENTAN [Suspect]
     Active Substance: AMBRISENTAN
     Dosage: 5MG/2.5MG, BID
     Route: 048
     Dates: start: 20110715, end: 20110928
  8. FLOLAN [Suspect]
     Active Substance: EPOPROSTENOL SODIUM
     Indication: PULMONARY ARTERIAL HYPERTENSION
     Dosage: 55NG/KG/MIN
     Route: 042
     Dates: start: 200401
  9. LASIX [Concomitant]
     Active Substance: FUROSEMIDE
     Dosage: UNK
     Dates: end: 20130714
  10. URSO [Concomitant]
     Active Substance: URSODIOL
     Dosage: UNK
     Dates: end: 20130714
  11. FUROSEMIDE. [Concomitant]
     Active Substance: FUROSEMIDE
     Dosage: UNK
     Dates: start: 20130606, end: 20130714
  12. SOL-MELCORT [Concomitant]
     Active Substance: METHYLPREDNISOLONE SODIUM SUCCINATE
     Indication: PULMONARY FIBROSIS
     Dosage: UNK
     Dates: start: 20130618, end: 20130620
  13. AMBRISENTAN [Suspect]
     Active Substance: AMBRISENTAN
     Dosage: 2.5 MG, BID
     Route: 048
     Dates: start: 20111008, end: 20130714
  14. DIGOSIN [Concomitant]
     Active Substance: DIGOXIN
     Indication: RIGHT VENTRICULAR FAILURE
     Dosage: UNK
     Dates: start: 20121227, end: 20121227
  15. MORPHINE HYDROCHLORIDE INJECTION [Concomitant]
     Indication: ANALGESIC THERAPY
     Dosage: UNK
     Dates: start: 20130714, end: 20130714
  16. NEXIUM CAPSULE [Concomitant]
     Dosage: UNK
     Dates: start: 20121214, end: 20130714
  17. FLOLAN [Suspect]
     Active Substance: EPOPROSTENOL SODIUM
     Dosage: 62.3 NG/KG/MIN
     Route: 042
     Dates: end: 20130714
  18. ADCIRCA [Concomitant]
     Active Substance: TADALAFIL
     Indication: PULMONARY ARTERIAL HYPERTENSION
     Dosage: UNK
     Dates: start: 20110420, end: 20130714
  19. LASIX [Concomitant]
     Active Substance: FUROSEMIDE
     Dosage: UNK
     Dates: start: 20101112
  20. PIROLACTON [Concomitant]
     Active Substance: SPIRONOLACTONE
     Dosage: UNK
     Dates: start: 20090908, end: 20130714
  21. ALENDRONATE TABLETS [Concomitant]
     Indication: OSTEOPOROSIS
     Dosage: UNK
     Dates: start: 20121213, end: 20130712
  22. HERPAMINE [Concomitant]
     Indication: RIGHT VENTRICULAR FAILURE
     Dosage: UNK
     Dates: start: 20130319, end: 20130714
  23. DOBUPUM [Concomitant]
     Active Substance: DOBUTAMINE HYDROCHLORIDE
     Indication: RIGHT VENTRICULAR FAILURE
     Dosage: UNK
     Dates: start: 20121123, end: 20121204
  24. VASOLAN [Concomitant]
     Dosage: UNK
     Dates: start: 20130403, end: 20130403
  25. FESIN (JAPAN) [Concomitant]
     Active Substance: IRON SUCROSE
     Indication: ANAEMIA
     Dosage: UNK
     Dates: start: 20130220, end: 20130220
  26. FESIN (JAPAN) [Concomitant]
     Active Substance: IRON SUCROSE
     Dosage: UNK
     Dates: start: 20130412, end: 20130413
  27. DOPAMINE [Concomitant]
     Active Substance: DOPAMINE\DOPAMINE HYDROCHLORIDE
     Indication: RIGHT VENTRICULAR FAILURE
     Dosage: UNK
     Dates: start: 20130616, end: 20130714
  28. MEYLON INJECTION [Concomitant]
     Indication: ACIDOSIS
     Dosage: UNK
     Dates: start: 20130714, end: 20130714
  29. PREDNISOLONE TABLETS [Concomitant]
     Indication: PNEUMONIA
     Dosage: UNK
     Dates: start: 20130307, end: 20130307
  30. FEBURIC TABLETS [Concomitant]
     Active Substance: FEBUXOSTAT
     Dosage: UNK
     Dates: start: 20130402, end: 20130714
  31. AMBRISENTAN [Suspect]
     Active Substance: AMBRISENTAN
     Dosage: 2.5 MG, TID
     Route: 048
     Dates: start: 20110929, end: 20111007
  32. FLUITRAN [Concomitant]
     Active Substance: TRICHLORMETHIAZIDE
     Dosage: UNK
     Dates: start: 20101111, end: 20130714
  33. OMEPRAZOLE. [Concomitant]
     Active Substance: OMEPRAZOLE
     Dosage: UNK
     Dates: start: 20130618, end: 20130620
  34. SLOW-K [Concomitant]
     Active Substance: POTASSIUM CHLORIDE
     Dosage: UNK
     Dates: end: 20130623
  35. MUCOTRON [Concomitant]
     Active Substance: CARBOCYSTEINE
     Dosage: UNK
     Dates: end: 20130620
  36. FESIN (JAPAN) [Concomitant]
     Active Substance: IRON SUCROSE
     Dosage: UNK
     Dates: start: 20130403, end: 20130404
  37. PREDONINE [Concomitant]
     Active Substance: PREDNISOLONE
     Dosage: UNK
     Dates: end: 20130714
  38. DOBUPUM [Concomitant]
     Active Substance: DOBUTAMINE HYDROCHLORIDE
     Dosage: UNK
     Dates: start: 20130609, end: 20130714
  39. DOBUX [Concomitant]
     Indication: RIGHT VENTRICULAR FAILURE
     Dosage: UNK
     Dates: start: 20130207, end: 20130402
  40. SAMSCA [Concomitant]
     Active Substance: TOLVAPTAN
     Dosage: UNK
     Dates: start: 20130609, end: 20130714
  41. PREDNISOLONE SODIUM SUCCINATE [Concomitant]
     Active Substance: PREDNISOLONE SODIUM SUCCINATE
     Indication: PULMONARY FIBROSIS
     Dosage: UNK
     Dates: start: 20130713, end: 20130714
  42. AMBRISENTAN [Suspect]
     Active Substance: AMBRISENTAN
     Indication: PULMONARY ARTERIAL HYPERTENSION
     Dosage: 5 MG, QD
     Route: 048
     Dates: start: 20110604, end: 20110607
  43. AMBRISENTAN [Suspect]
     Active Substance: AMBRISENTAN
     Dosage: 7.5 MG, QD
     Route: 048
     Dates: start: 20110608, end: 20110714
  44. LASIX [Concomitant]
     Active Substance: FUROSEMIDE
     Dosage: UNK
     Dates: start: 20130206, end: 20130207
  45. REBAMIPIDE [Concomitant]
     Active Substance: REBAMIPIDE
     Dosage: UNK
     Dates: end: 20120620
  46. ULCERLMIN [Concomitant]
     Active Substance: SUCRALFATE
     Dosage: UNK
     Dates: end: 20130714
  47. VASOLAN [Concomitant]
     Indication: TACHYCARDIA
     Dosage: UNK
     Dates: start: 20121227, end: 20121227
  48. FESIN (JAPAN) [Concomitant]
     Active Substance: IRON SUCROSE
     Dosage: UNK
     Dates: start: 20130709, end: 20130711
  49. FERRUM (JAPAN) [Concomitant]
     Dosage: UNK
     Dates: start: 20120621, end: 20121205

REACTIONS (7)
  - Haemoglobin decreased [Recovering/Resolving]
  - Device related infection [Recovering/Resolving]
  - Platelet count decreased [Recovering/Resolving]
  - Cellulitis [Recovering/Resolving]
  - Cellulitis [Recovered/Resolved]
  - Pneumonia [Not Recovered/Not Resolved]
  - Taste disorder [Recovering/Resolving]

NARRATIVE: CASE EVENT DATE: 20110609
